FAERS Safety Report 6618265-4 (Version None)
Quarter: 2010Q1

REPORT INFORMATION
  Report Type: 
  Country: None (occurrence: None)
  Receive Date: 20100308
  Receipt Date: 20100302
  Transmission Date: 20100710
  Serious: Yes (Other)
  Sender: FDA-Public Use
  Company Number: US-ALLERGAN-1002717US

PATIENT
  Age: 74 Year
  Sex: Male

DRUGS (1)
  1. FML FORTE [Suspect]
     Indication: INFLAMMATION
     Dosage: 1 GTT, QID
     Dates: start: 20090919, end: 20091108

REACTIONS (3)
  - EYE DISCHARGE [None]
  - RETINAL DETACHMENT [None]
  - VISION BLURRED [None]
